FAERS Safety Report 15021101 (Version 1)
Quarter: 2018Q2

REPORT INFORMATION
  Report Type: Spontaneous
  Country: US (occurrence: US)
  Receive Date: 20180524
  Receipt Date: 20180524
  Transmission Date: 20180711
  Serious: Yes (Hospitalization)
  Sender: FDA-Public Use
  Company Number: None

PATIENT
  Age: 13 Year
  Sex: Male

DRUGS (1)
  1. TOBRAMYCIN, 300MG [Suspect]
     Active Substance: TOBRAMYCIN
     Indication: CYSTIC FIBROSIS
     Dosage: 300 MG BID QOM NEBULIZER?          ?
     Route: 055
     Dates: start: 20160602

REACTIONS (1)
  - Lung disorder [None]

NARRATIVE: CASE EVENT DATE: 20180412
